FAERS Safety Report 4994490-3 (Version None)
Quarter: 2006Q2

REPORT INFORMATION
  Report Type: 
  Country: None (occurrence: None)
  Receive Date: 20060505
  Receipt Date: 20050720
  Transmission Date: 20061013
  Serious: Yes (Death, Hospitalization, Disabling)
  Sender: FDA-Public Use
  Company Number: US-MERCK-0507USA03330

PATIENT
  Age: 76 Year
  Sex: Female
  Weight: 73 kg

DRUGS (2)
  1. VIOXX [Suspect]
     Indication: PAIN
     Route: 048
     Dates: start: 20030514, end: 20031101
  2. VIOXX [Suspect]
     Route: 048
     Dates: start: 20040120, end: 20041002

REACTIONS (9)
  - ADVERSE EVENT [None]
  - ATRIAL FIBRILLATION [None]
  - CEREBROVASCULAR ACCIDENT [None]
  - ESSENTIAL HYPERTENSION [None]
  - GENERAL SYMPTOM [None]
  - HYPERCHOLESTEROLAEMIA [None]
  - HYPERLIPIDAEMIA [None]
  - NERVE INJURY [None]
  - THROMBOSIS [None]
